FAERS Safety Report 9541577 (Version 1)
Quarter: 2013Q3

REPORT INFORMATION
  Report Type: Spontaneous
  Country: AT (occurrence: AT)
  Receive Date: 20130923
  Receipt Date: 20130923
  Transmission Date: 20140515
  Serious: Yes (Hospitalization)
  Sender: FDA-Public Use
  Company Number: AT-ALEXION PHARMACEUTICALS INC.-A201302307

PATIENT
  Age: 33 Year
  Sex: Female

DRUGS (10)
  1. SOLIRIS 300MG [Suspect]
     Indication: HAEMOLYTIC URAEMIC SYNDROME
     Dosage: 900 MG, Q3W
     Route: 042
     Dates: start: 20120112, end: 20130826
  2. PREDNISOLONE [Concomitant]
     Indication: RENAL TRANSPLANT
     Dosage: UNK
     Dates: start: 201111, end: 201308
  3. CELLCEPT [Concomitant]
     Indication: RENAL TRANSPLANT
     Dosage: UNK
     Dates: start: 201111, end: 201308
  4. ITERIUM [Concomitant]
     Indication: HYPERTENSION
     Dosage: UNK
     Dates: start: 201111, end: 201308
  5. ZANIDIP [Concomitant]
     Indication: HYPERTENSION
     Dosage: UNK
     Dates: start: 201111, end: 201308
  6. PANTOLOC [Concomitant]
     Indication: GASTRITIS
     Dosage: UNK
     Dates: start: 201111, end: 201308
  7. PROGRAF [Concomitant]
     Indication: RENAL TRANSPLANT
     Dosage: UNK
     Dates: start: 201111, end: 201308
  8. VALCYTE [Concomitant]
     Indication: INFECTION
     Dosage: UNK
     Dates: start: 201111, end: 201308
  9. CARVEDILOL [Concomitant]
     Indication: HYPERTENSION
     Dosage: UNK
     Dates: start: 201111, end: 201308
  10. KALIORAL [Concomitant]
     Indication: HYPOKALAEMIA
     Dosage: UNK
     Dates: start: 201111, end: 201308

REACTIONS (1)
  - Infection [Unknown]
